FAERS Safety Report 24133302 (Version 3)
Quarter: 2024Q4

REPORT INFORMATION
  Report Type: Report from Study
  Country: IT (occurrence: IT)
  Receive Date: 20240724
  Receipt Date: 20241030
  Transmission Date: 20250114
  Serious: Yes (Hospitalization, Other)
  Sender: ABBVIE
  Company Number: IT-ABBVIE-5845631

PATIENT
  Age: 81 Year
  Sex: Male

DRUGS (2)
  1. CARBIDOPA\LEVODOPA [Suspect]
     Active Substance: CARBIDOPA\LEVODOPA
     Indication: Parkinson^s disease
     Dosage: DAILY DOSE: 1.446 MG; MD: 13,5ML+3ML CR: 3,2ML/H ED: 3,8ML
     Route: 050
     Dates: start: 20210913, end: 20240818
  2. CARBIDOPA\LEVODOPA [Suspect]
     Active Substance: CARBIDOPA\LEVODOPA
     Dosage: DAILY DOSE: 1.446 MG; MD: 13,5ML+3ML CR: 3,2ML/H ED: 3,8ML;
     Route: 050
     Dates: start: 2024

REACTIONS (3)
  - Ischaemia [Recovered/Resolved]
  - Carotid artery occlusion [Not Recovered/Not Resolved]
  - Cerebrovascular accident [Unknown]

NARRATIVE: CASE EVENT DATE: 20240701
